FAERS Safety Report 24421771 (Version 1)
Quarter: 2024Q4

REPORT INFORMATION
  Report Type: Report from Study
  Country: MX (occurrence: MX)
  Receive Date: 20241010
  Receipt Date: 20241010
  Transmission Date: 20250114
  Serious: Yes (Hospitalization, Other)
  Sender: BIOVITRUM
  Company Number: MX-AstraZeneca-CH-00715291A

PATIENT
  Age: 4 Month
  Sex: Male
  Weight: 2 kg

DRUGS (2)
  1. SYNAGIS [Suspect]
     Active Substance: PALIVIZUMAB
     Indication: Premature baby
     Dosage: 1ST DOSE, MONTHLY
     Dates: start: 20240822, end: 20240822
  2. SYNAGIS [Suspect]
     Active Substance: PALIVIZUMAB
     Dosage: 1 MILLILITER, QMONTH
     Dates: start: 20240922

REACTIONS (1)
  - Bronchiolitis [Recovered/Resolved]

NARRATIVE: CASE EVENT DATE: 20240922
